FAERS Safety Report 6132014-8 (Version None)
Quarter: 2009Q1

REPORT INFORMATION
  Report Type: 
  Country: None (occurrence: None)
  Receive Date: 20090325
  Receipt Date: 20090319
  Transmission Date: 20090719
  Serious: Yes (Hospitalization, Other)
  Sender: FDA-Public Use
  Company Number: US-JNJCH-2009007570

PATIENT
  Age: 57 Year
  Sex: Female
  Weight: 68 kg

DRUGS (6)
  1. ROGAINE [Suspect]
     Indication: ALOPECIA
     Dosage: TEXT:1/4 CUPFUL 3 TIMES A WEEK
     Route: 061
  2. SYNTHROID [Concomitant]
     Indication: HYPOTHYROIDISM
     Dosage: TEXT:175 MCG 1X DAY
     Route: 065
  3. PROZAC [Concomitant]
     Indication: DEPRESSION
     Dosage: TEXT:20 MG 1X DAY
     Route: 065
  4. NORTRIPTYLINE HCL [Concomitant]
     Indication: DEPRESSION
     Dosage: TEXT:75 MG 1X DAY
     Route: 065
  5. SEROQUEL [Concomitant]
     Indication: DEPRESSION
     Dosage: TEXT:200 MG 1X DAY
     Route: 065
  6. SEROQUEL [Concomitant]
     Indication: SLEEP DISORDER

REACTIONS (4)
  - HALLUCINATION [None]
  - HEART RATE INCREASED [None]
  - INSOMNIA [None]
  - WRONG DRUG ADMINISTERED [None]
